FAERS Safety Report 9215017 (Version 1)
Quarter: 2013Q2

REPORT INFORMATION
  Report Type: Report from Study
  Country: US (occurrence: US)
  Receive Date: 20130405
  Receipt Date: 20130405
  Transmission Date: 20140414
  Serious: Yes (Other)
  Sender: FDA-Public Use
  Company Number: US-ABBOTT-13P-163-1070689-00

PATIENT
  Sex: Female
  Weight: 81.72 kg

DRUGS (10)
  1. HUMIRA [Suspect]
     Indication: RHEUMATOID ARTHRITIS
     Route: 058
     Dates: start: 2011, end: 201211
  2. LEVOTHYROXINE [Concomitant]
     Indication: HYPOTHYROIDISM
  3. UNKNOWN MEDICATION [Concomitant]
     Indication: HYPERTENSION
  4. AMBIEN [Concomitant]
     Indication: INSOMNIA
  5. VITAMIN D [Concomitant]
     Indication: VITAMIN D DEFICIENCY
  6. MULTIVITAMIN [Concomitant]
     Indication: ROUTINE HEALTH MAINTENANCE
  7. BIOTENE [Concomitant]
     Indication: ALOPECIA
  8. FLEXERIL [Concomitant]
     Indication: MUSCLE SPASMS
  9. TRAMADOL [Concomitant]
     Indication: PAIN
  10. EFFEXOR [Concomitant]
     Indication: DEPRESSION

REACTIONS (5)
  - Rotator cuff syndrome [Unknown]
  - Fall [Recovered/Resolved]
  - Ankle fracture [Unknown]
  - Respiratory tract infection [Recovered/Resolved]
  - Influenza [Recovered/Resolved]
